FAERS Safety Report 20080186 (Version 2)
Quarter: 2022Q1

REPORT INFORMATION
  Report Type: Report from Study
  Country: FR (occurrence: FR)
  Receive Date: 20211117
  Receipt Date: 20220223
  Transmission Date: 20220424
  Serious: Yes (Hospitalization, Other)
  Sender: FDA-Public Use
  Company Number: FR-TAKEDA-2021TUS070803

PATIENT
  Age: 32 Year
  Sex: Female

DRUGS (8)
  1. TEDUGLUTIDE [Suspect]
     Active Substance: TEDUGLUTIDE
     Indication: Short-bowel syndrome
     Dosage: 2.2 MILLIGRAM, QD
     Route: 065
     Dates: start: 20151113, end: 20180428
  2. TEDUGLUTIDE [Suspect]
     Active Substance: TEDUGLUTIDE
     Indication: Short-bowel syndrome
     Dosage: 2.2 MILLIGRAM, QD
     Route: 065
     Dates: start: 20151113, end: 20180428
  3. TEDUGLUTIDE [Suspect]
     Active Substance: TEDUGLUTIDE
     Indication: Short-bowel syndrome
     Dosage: 2.2 MILLIGRAM, QD
     Route: 065
     Dates: start: 20151113, end: 20180428
  4. TEDUGLUTIDE [Suspect]
     Active Substance: TEDUGLUTIDE
     Indication: Short-bowel syndrome
     Dosage: 2.2 MILLIGRAM, QD
     Route: 065
     Dates: start: 20151113, end: 20180428
  5. IRON [Concomitant]
     Active Substance: IRON
     Indication: Haemorrhage
     Dosage: 5000 MILLIGRAM, ONCE
     Route: 042
     Dates: start: 20200717, end: 20200717
  6. VANCOMYCIN [Concomitant]
     Active Substance: VANCOMYCIN
     Indication: Colitis
     Dosage: 125 MILLIGRAM, QID
     Route: 048
     Dates: start: 20200228, end: 20200308
  7. OSELTAMIVIR [Concomitant]
     Active Substance: OSELTAMIVIR
     Indication: Influenza
     Dosage: 1 CAP, QD
     Route: 048
     Dates: start: 20200223, end: 20200226
  8. FOLIC ACID [Concomitant]
     Active Substance: FOLIC ACID
     Indication: Prophylaxis
     Dosage: 5 MILLIGRAM, QD
     Route: 048

REACTIONS (1)
  - Gastrointestinal haemorrhage [Recovered/Resolved]

NARRATIVE: CASE EVENT DATE: 20200706
